FAERS Safety Report 17433251 (Version 1)
Quarter: 2020Q1

REPORT INFORMATION
  Report Type: Spontaneous
  Country: US (occurrence: US)
  Receive Date: 20200219
  Receipt Date: 20200219
  Transmission Date: 20200409
  Serious: No
  Sender: FDA-Public Use
  Company Number: US-ASTRAZENECA-2020SE20845

PATIENT
  Sex: Female
  Weight: 55.8 kg

DRUGS (4)
  1. BRILINTA [Suspect]
     Active Substance: TICAGRELOR
     Indication: STENT PLACEMENT
     Route: 048
     Dates: start: 20190615
  2. METOPOROLOL SUCCINATE ER [Suspect]
     Active Substance: METOPROLOL SUCCINATE
     Indication: HYPOTENSION
     Route: 048
     Dates: start: 20190615
  3. CRESTOR GENERIC [Suspect]
     Active Substance: ROSUVASTATIN CALCIUM
     Indication: ATRIOVENTRICULAR BLOCK
     Route: 048
     Dates: start: 201904, end: 20200206
  4. ASPIRIN. [Concomitant]
     Active Substance: ASPIRIN

REACTIONS (2)
  - Blood cholesterol decreased [Unknown]
  - Lipoprotein (a) increased [Unknown]
